FAERS Safety Report 8405939-8 (Version None)
Quarter: 2012Q2

REPORT INFORMATION
  Report Type: 
  Country: None (occurrence: None)
  Receive Date: 20120604
  Receipt Date: 20120525
  Transmission Date: 20120825
  Serious: Yes (Other)
  Sender: FDA-Public Use
  Company Number: US-JNJFOC-20120520474

PATIENT
  Sex: Male

DRUGS (3)
  1. ZYTIGA [Suspect]
     Indication: PROSTATE CANCER METASTATIC
     Route: 048
     Dates: start: 20120101
  2. HIV MEDICATION [Interacting]
     Indication: HIV INFECTION
     Route: 065
  3. ZYTIGA [Suspect]
     Dosage: FOR TWO MONTHS
     Route: 048
     Dates: start: 20120101, end: 20120101

REACTIONS (1)
  - DRUG INTERACTION [None]
